FAERS Safety Report 14598351 (Version 1)
Quarter: 2018Q1

REPORT INFORMATION
  Report Type: Spontaneous
  Country: US (occurrence: US)
  Receive Date: 20180305
  Receipt Date: 20180305
  Transmission Date: 20180509
  Serious: No
  Sender: FDA-Public Use
  Company Number: US-009507513-1803USA000250

PATIENT
  Age: 30 Year
  Sex: Female
  Weight: 63.49 kg

DRUGS (1)
  1. NEXPLANON [Suspect]
     Active Substance: ETONOGESTREL
     Indication: CONTRACEPTION
     Dosage: 1 IMPLNAT, EVERY 5 YEARS, LEFT ARM
     Route: 059

REACTIONS (11)
  - Feeling abnormal [Unknown]
  - Inappropriate schedule of drug administration [Unknown]
  - Dysgeusia [Unknown]
  - Depressed mood [Unknown]
  - Mood altered [Unknown]
  - Hot flush [Unknown]
  - Malaise [Unknown]
  - Apathy [Unknown]
  - Fatigue [Unknown]
  - Abdominal pain [Unknown]
  - Sluggishness [Unknown]

NARRATIVE: CASE EVENT DATE: 201712
